FAERS Safety Report 5733925-5 (Version None)
Quarter: 2008Q2

REPORT INFORMATION
  Report Type: 
  Country: None (occurrence: None)
  Receive Date: 20080509
  Receipt Date: 20080418
  Transmission Date: 20081010
  Serious: No
  Sender: FDA-Public Use
  Company Number: US-BOEHRINGER INGELHEIM GMBH, GERMANY-2008-BP-06221BP

PATIENT
  Sex: Female

DRUGS (3)
  1. AGGRENOX [Suspect]
     Indication: CEREBROVASCULAR ACCIDENT PROPHYLAXIS
     Route: 048
     Dates: start: 20080417, end: 20080417
  2. FOLIC ACID [Concomitant]
  3. HYDROXYUREA [Concomitant]
     Indication: SICKLE CELL ANAEMIA
     Route: 048
     Dates: start: 20070701

REACTIONS (1)
  - HEADACHE [None]
